FAERS Safety Report 26162486 (Version 1)
Quarter: 2025Q4

REPORT INFORMATION
  Report Type: Spontaneous
  Country: US (occurrence: US)
  Receive Date: 20251216
  Receipt Date: 20251216
  Transmission Date: 20260118
  Serious: Yes (Life-Threatening, Hospitalization, Other)
  Sender: GLENMARK
  Company Number: US-MLMSERVICE-20251204-PI739523-00331-1

PATIENT
  Age: 23 Year
  Sex: Male

DRUGS (3)
  1. VERAPAMIL [Suspect]
     Active Substance: VERAPAMIL HYDROCHLORIDE
     Indication: Product used for unknown indication
     Dosage: UNK
     Route: 065
  2. NOREPINEPHRINE [Concomitant]
     Active Substance: NOREPINEPHRINE
     Indication: Hypotension
     Dosage: UNK
     Route: 065
  3. NOREPINEPHRINE [Concomitant]
     Active Substance: NOREPINEPHRINE
     Dosage: UNK
     Route: 042

REACTIONS (11)
  - Electrocardiogram QT prolonged [Recovered/Resolved]
  - Respiratory failure [Recovered/Resolved]
  - Shock [Recovered/Resolved]
  - Acute kidney injury [Recovered/Resolved]
  - Acute respiratory distress syndrome [Recovered/Resolved]
  - Renal failure [Recovered/Resolved]
  - Multiple organ dysfunction syndrome [Recovered/Resolved]
  - Intentional overdose [Recovered/Resolved]
  - Nodal rhythm [Recovered/Resolved]
  - Bradycardia [Recovered/Resolved]
  - Bundle branch block left [Recovered/Resolved]
